FAERS Safety Report 9500531 (Version 1)
Quarter: 2013Q1

REPORT INFORMATION
  Report Type: Spontaneous
  Country: US (occurrence: None)
  Receive Date: 20130107
  Receipt Date: 20130107
  Transmission Date: 20140127
  Serious: No
  Sender: FDA-Public Use
  Company Number: PHHY2012US100573

PATIENT
  Age: 39 Year
  Sex: Female

DRUGS (2)
  1. GILENYA [Suspect]
     Indication: MULTIPLE SCLEROSIS
     Route: 048
     Dates: start: 20110127
  2. AMPYRA (FAMPRIDINE) [Concomitant]

REACTIONS (3)
  - Oropharyngeal pain [None]
  - Fungal skin infection [None]
  - Dysphonia [None]
